FAERS Safety Report 8308528-9 (Version None)
Quarter: 2012Q1

REPORT INFORMATION
  Report Type: 
  Country: None (occurrence: None)
  Receive Date: 20120327
  Receipt Date: 20110217
  Transmission Date: 20120608
  Serious: Yes (Other)
  Sender: FDA-Public Use
  Company Number: PHHY2011US06156

PATIENT
  Age: 44 Year
  Sex: Female
  Weight: 63.9 kg

DRUGS (1)
  1. GLEEVEC [Suspect]
     Indication: CHRONIC MYELOID LEUKAEMIA
     Dosage: 150 MG, QD, ORAL
     Route: 048
     Dates: start: 20090901

REACTIONS (3)
  - DRUG INEFFECTIVE [None]
  - CHRONIC MYELOID LEUKAEMIA [None]
  - WHITE BLOOD CELL COUNT DECREASED [None]
